FAERS Safety Report 6594647-4 (Version None)
Quarter: 2010Q1

REPORT INFORMATION
  Report Type: 
  Country: None (occurrence: None)
  Receive Date: 20100222
  Receipt Date: 20100212
  Transmission Date: 20100710
  Serious: Yes (Hospitalization, Other)
  Sender: FDA-Public Use
  Company Number: US-ASTRAZENECA-2009SE25315

PATIENT
  Age: 78 Year
  Sex: Male
  Weight: 74.8 kg

DRUGS (11)
  1. TOPROL-XL [Suspect]
     Route: 048
  2. NEXIUM [Concomitant]
     Route: 048
  3. IMDUR [Concomitant]
     Route: 048
  4. ALTACE [Concomitant]
  5. PROSCAR [Concomitant]
  6. LIPITOR [Concomitant]
  7. MULTAQ [Concomitant]
     Indication: ATRIAL FIBRILLATION
     Route: 048
  8. ASPIRIN [Concomitant]
  9. COUMADIN [Concomitant]
  10. ZETIA [Concomitant]
  11. FLOMAX [Concomitant]

REACTIONS (5)
  - ATRIAL FIBRILLATION [None]
  - BACK PAIN [None]
  - DIZZINESS [None]
  - LOSS OF CONSCIOUSNESS [None]
  - SYNCOPE [None]
